FAERS Safety Report 9941291 (Version 2)
Quarter: 2014Q1

REPORT INFORMATION
  Report Type: Spontaneous
  Country: DE (occurrence: DE)
  Receive Date: 20140303
  Receipt Date: 20140303
  Transmission Date: 20141002
  Serious: Yes (Hospitalization)
  Sender: FDA-Public Use
  Company Number: DE-B.I. PHARMACEUTICALS,INC./RIDGEFIELD-2014-BI-07760DE

PATIENT
  Age: 78 Year
  Sex: Male
  Weight: 90 kg

DRUGS (7)
  1. PRADAXA [Suspect]
     Indication: ATRIAL FIBRILLATION
     Dosage: 300 MG
     Route: 048
     Dates: start: 201401
  2. PRADAXA [Suspect]
     Indication: PROPHYLAXIS
  3. TOREM [Suspect]
     Indication: PRODUCT USED FOR UNKNOWN INDICATION
     Dosage: 10 MG
     Route: 048
     Dates: start: 201401
  4. TORASEMID [Concomitant]
     Route: 065
  5. ATACAND [Concomitant]
     Dosage: 8 MG
     Route: 048
  6. HCT [Concomitant]
     Dosage: 12.5 MG
     Route: 048
     Dates: start: 201401
  7. ZOLPIDEM [Concomitant]
     Route: 065

REACTIONS (12)
  - Gastrointestinal disorder [Not Recovered/Not Resolved]
  - Decreased appetite [Not Recovered/Not Resolved]
  - Epistaxis [Recovered/Resolved]
  - Pruritus [Not Recovered/Not Resolved]
  - Chromaturia [Not Recovered/Not Resolved]
  - Cough [Not Recovered/Not Resolved]
  - Weight increased [Not Recovered/Not Resolved]
  - Oedema peripheral [Not Recovered/Not Resolved]
  - Thirst [Not Recovered/Not Resolved]
  - Diarrhoea [Not Recovered/Not Resolved]
  - Abnormal faeces [Unknown]
  - Conjunctival haemorrhage [Unknown]
